FAERS Safety Report 23407492 (Version 1)
Quarter: 2024Q1

REPORT INFORMATION
  Report Type: Spontaneous
  Country: CA (occurrence: CA)
  Receive Date: 20240117
  Receipt Date: 20240117
  Transmission Date: 20240410
  Serious: Yes (Hospitalization)
  Sender: FDA-Public Use
  Company Number: CA-DRL-USA-SPO/CAN/24/0000545

PATIENT
  Age: 84 Year
  Sex: Female
  Weight: 94 kg

DRUGS (1)
  1. ZOLEDRONIC ACID [Suspect]
     Active Substance: ZOLEDRONIC ACID
     Indication: Osteoporotic fracture
     Dosage: 0.05 MG/ML
     Route: 041

REACTIONS (3)
  - Chills [Recovered/Resolved]
  - Headache [Recovered/Resolved]
  - Pyrexia [Recovered/Resolved]
